FAERS Safety Report 10484798 (Version 1)
Quarter: 2014Q3

REPORT INFORMATION
  Report Type: Report from Study
  Country: BR (occurrence: BR)
  Receive Date: 20140930
  Receipt Date: 20140930
  Transmission Date: 20150326
  Serious: Yes (Other)
  Sender: FDA-Public Use
  Company Number: PHHY2014BR126866

PATIENT
  Sex: Female
  Weight: 85 kg

DRUGS (4)
  1. NEUROPRAM [Concomitant]
     Indication: SEDATIVE THERAPY
     Dosage: 2 DF, QD AT NIGHT
  2. NEUROPRAM [Concomitant]
     Dosage: 1 DF, QD
  3. CLONAZEPAM. [Concomitant]
     Active Substance: CLONAZEPAM
     Indication: ANXIETY
     Dosage: 10 DRP, QHS
  4. GILENYA [Suspect]
     Active Substance: FINGOLIMOD HYDROCHLORIDE
     Indication: MULTIPLE SCLEROSIS
     Dosage: 1 DF, QD
     Route: 048
     Dates: start: 201405

REACTIONS (7)
  - Blindness unilateral [Unknown]
  - Visual impairment [Unknown]
  - Eye pain [Unknown]
  - Overweight [Unknown]
  - Burning sensation [Recovered/Resolved]
  - Hypoaesthesia [Unknown]
  - Pruritus [Unknown]
